FAERS Safety Report 9251836 (Version 2)
Quarter: 2013Q2

REPORT INFORMATION
  Report Type: Spontaneous
  Country: US (occurrence: US)
  Receive Date: 20130424
  Receipt Date: 20130507
  Transmission Date: 20140414
  Serious: No
  Sender: FDA-Public Use
  Company Number: US-PFIZER INC-2013123325

PATIENT
  Age: 54 Year
  Sex: Male
  Weight: 107 kg

DRUGS (1)
  1. VIAGRA [Suspect]
     Indication: ERECTILE DYSFUNCTION
     Dosage: 50 MG, WEEKLY
     Dates: start: 2013

REACTIONS (1)
  - Drug ineffective [Unknown]
